FAERS Safety Report 12130369 (Version 1)
Quarter: 2016Q1

REPORT INFORMATION
  Report Type: Spontaneous
  Country: FR (occurrence: FR)
  Receive Date: 20160301
  Receipt Date: 20160301
  Transmission Date: 20160526
  Serious: Yes (Hospitalization)
  Sender: FDA-Public Use
  Company Number: PHHY2016FR025991

PATIENT
  Age: 81 Year
  Sex: Female

DRUGS (5)
  1. EXELON PATCH [Suspect]
     Active Substance: RIVASTIGMINE
     Indication: PRODUCT USED FOR UNKNOWN INDICATION
     Dosage: 4.6 MG (1 PATCH/24 HR), QD
     Route: 062
     Dates: start: 201509, end: 201510
  2. CLOZAPINE. [Concomitant]
     Active Substance: CLOZAPINE
     Dosage: 25 MG, QD
     Route: 065
     Dates: start: 201502
  3. EXELON PATCH [Suspect]
     Active Substance: RIVASTIGMINE
     Dosage: 9.5 MG (1 PATCH/24 HR), QD
     Route: 062
     Dates: start: 201510
  4. CLOZAPINE. [Concomitant]
     Active Substance: CLOZAPINE
     Indication: PRODUCT USED FOR UNKNOWN INDICATION
     Dosage: 100 MG, QD
     Route: 065
     Dates: end: 201502
  5. SECTRAL [Concomitant]
     Active Substance: ACEBUTOLOL HYDROCHLORIDE
     Indication: HYPERTENSION
     Route: 065

REACTIONS (1)
  - Diet refusal [Recovered/Resolved]

NARRATIVE: CASE EVENT DATE: 20151127
